FAERS Safety Report 6000212-X (Version None)
Quarter: 2008Q4

REPORT INFORMATION
  Report Type: 
  Country: None (occurrence: None)
  Receive Date: 20081211
  Receipt Date: 20081211
  Transmission Date: 20090506
  Serious: Yes (Hospitalization)
  Sender: FDA-Public Use
  Company Number: None

PATIENT
  Sex: Male
  Weight: 67.4 kg

DRUGS (2)
  1. AVASTIN [Suspect]
     Indication: NEUROENDOCRINE CARCINOMA
     Dosage: 15MG/KG DAY 1/CYCLE IV
     Route: 042
     Dates: start: 20080611
  2. RAD001 [Suspect]
     Indication: NEUROENDOCRINE CARCINOMA
     Dosage: 10 MG DAYS 1-21/CYCLE PO
     Route: 048
     Dates: start: 20080701

REACTIONS (2)
  - SINUSITIS [None]
  - STAPHYLOCOCCAL INFECTION [None]
